FAERS Safety Report 4691009-1 (Version None)
Quarter: 2005Q2

REPORT INFORMATION
  Report Type: 
  Country: None (occurrence: None)
  Receive Date: 20050610
  Receipt Date: 20050530
  Transmission Date: 20051028
  Serious: Yes (Other)
  Sender: FDA-Public Use
  Company Number: 2005082461

PATIENT
  Sex: Male

DRUGS (2)
  1. VFEND [Suspect]
     Indication: SYSTEMIC MYCOSIS
     Dosage: INTRAVENOUS
     Route: 042
  2. VFEND (VORICONAZOEL) [Suspect]
     Indication: SYSTEMIC MYCOSIS
     Dosage: ORAL
     Route: 048

REACTIONS (1)
  - NEUROLEPTIC MALIGNANT SYNDROME [None]
